FAERS Safety Report 6109290-0 (Version None)
Quarter: 2009Q1

REPORT INFORMATION
  Report Type: 
  Country: None (occurrence: None)
  Receive Date: 20090309
  Receipt Date: 20090309
  Transmission Date: 20090719
  Serious: Yes (Hospitalization)
  Sender: FDA-Public Use
  Company Number: None

PATIENT
  Sex: Male
  Weight: 80 kg

DRUGS (1)
  1. CISPLATIN [Suspect]
     Dosage: 202 MG
     Dates: end: 20070410

REACTIONS (1)
  - BODY TEMPERATURE INCREASED [None]
